FAERS Safety Report 7667050-3 (Version None)
Quarter: 2011Q3

REPORT INFORMATION
  Report Type: 
  Country: None (occurrence: None)
  Receive Date: 20110806
  Receipt Date: 20110602
  Transmission Date: 20111222
  Serious: No
  Sender: FDA-Public Use
  Company Number: US-ABBOTT-11P-163-0730426-00

PATIENT
  Sex: Female
  Weight: 71.278 kg

DRUGS (8)
  1. LIPITOR [Concomitant]
     Indication: BLOOD CHOLESTEROL INCREASED
  2. NIASPAN [Suspect]
     Indication: ARTERIOSCLEROSIS
     Dates: start: 20110517, end: 20110521
  3. NEXIUM [Concomitant]
     Indication: GASTROOESOPHAGEAL REFLUX DISEASE
  4. VITAMIN B6 [Concomitant]
     Indication: MEDICAL DIET
  5. DICYCLOMINE [Concomitant]
     Indication: MUSCLE SPASMS
  6. CALCIUM D [Concomitant]
     Indication: MINERAL SUPPLEMENTATION
  7. EVISTA [Concomitant]
     Indication: PRODUCT USED FOR UNKNOWN INDICATION
  8. ADVAIR DISKUS 100/50 [Concomitant]
     Indication: ASTHMA

REACTIONS (1)
  - DIARRHOEA [None]
